FAERS Safety Report 7610326-6 (Version None)
Quarter: 2011Q3

REPORT INFORMATION
  Report Type: 
  Country: None (occurrence: None)
  Receive Date: 20110707
  Receipt Date: 20110623
  Transmission Date: 20111222
  Serious: Yes (Hospitalization, Other)
  Sender: FDA-Public Use
  Company Number: 2011MA008003

PATIENT
  Age: 27 Year
  Sex: Female

DRUGS (1)
  1. PROPRANOLOL HYDROCHLORIDE [Suspect]
     Dosage: 7 GM

REACTIONS (11)
  - HYPOTENSION [None]
  - BUNDLE BRANCH BLOCK RIGHT [None]
  - INTENTIONAL OVERDOSE [None]
  - ELECTROCARDIOGRAM QT PROLONGED [None]
  - UNRESPONSIVE TO STIMULI [None]
  - CIRCULATORY COLLAPSE [None]
  - PULSELESS ELECTRICAL ACTIVITY [None]
  - COMA SCALE ABNORMAL [None]
  - GENERAL PHYSICAL HEALTH DETERIORATION [None]
  - GRAND MAL CONVULSION [None]
  - SINUS BRADYCARDIA [None]
